FAERS Safety Report 15774762 (Version 1)
Quarter: 2018Q4

REPORT INFORMATION
  Report Type: Spontaneous
  Country: US (occurrence: US)
  Receive Date: 20181230
  Receipt Date: 20181230
  Transmission Date: 20190205
  Serious: Yes (Hospitalization)
  Sender: FDA-Public Use
  Company Number: US-AMARIN PHARMA, INC.-2018AMR000330

PATIENT
  Age: 77 Year
  Sex: Male
  Weight: 98.97 kg

DRUGS (1)
  1. VASCEPA [Suspect]
     Active Substance: ICOSAPENT ETHYL
     Indication: BLOOD TRIGLYCERIDES ABNORMAL
     Route: 048

REACTIONS (10)
  - Myocardial infarction [Unknown]
  - Off label use [Unknown]
  - Arterial injury [Unknown]
  - Product size issue [Unknown]
  - Arterial therapeutic procedure [Unknown]
  - Cerebrovascular accident [Unknown]
  - Dysphagia [Unknown]
  - Choking [Unknown]
  - Prescribed underdose [Unknown]
  - Product use complaint [Unknown]

NARRATIVE: CASE EVENT DATE: 201811
